FAERS Safety Report 9107033 (Version 2)
Quarter: 2013Q1

REPORT INFORMATION
  Report Type: Spontaneous
  Country: US (occurrence: US)
  Receive Date: 20130221
  Receipt Date: 20130314
  Transmission Date: 20140127
  Serious: Yes (Death, Hospitalization, Other)
  Sender: FDA-Public Use
  Company Number: US-CELGENEUS-163-21880-12122041

PATIENT
  Age: 91 None
  Sex: Male

DRUGS (22)
  1. REVLIMID [Suspect]
     Indication: PLASMA CELL MYELOMA
     Dosage: 15 MILLIGRAM
     Route: 048
     Dates: start: 201207, end: 20121226
  2. LANTUS [Concomitant]
     Indication: DIABETES MELLITUS
     Dosage: 100UNIT/ML, 5 UNITS
     Route: 065
  3. LANTUS [Concomitant]
     Dosage: INCREASED TO 8 UNITS
     Route: 065
     Dates: start: 201212
  4. GLIPIZIDE [Concomitant]
     Indication: DIABETES MELLITUS
     Route: 065
  5. APIDRA [Concomitant]
     Indication: HYPOGLYCAEMIA
     Dosage: 3 UNITS
     Route: 058
     Dates: start: 201212
  6. VITAMIN D3 [Concomitant]
     Indication: VITAMIN D DECREASED
     Dosage: 2000 UNITS
     Route: 048
     Dates: start: 201212
  7. VITAMIN D2 [Concomitant]
     Indication: VITAMIN D DECREASED
     Dosage: 50000 UNITS
     Route: 048
     Dates: start: 201212
  8. HUMALOG [Concomitant]
     Indication: PRODUCT USED FOR UNKNOWN INDICATION
     Dosage: 100UNIT/ML, SLIDING SCALE
     Route: 065
  9. AMLODIPINE BESYLATE [Concomitant]
     Indication: HYPERTENSION
     Dosage: 10 MILLIGRAM
     Route: 048
  10. FAMOTIDINE [Concomitant]
     Indication: PROPHYLAXIS
     Dosage: 20 MILLIGRAM
     Route: 048
  11. AMARYL [Concomitant]
     Indication: PRODUCT USED FOR UNKNOWN INDICATION
     Dosage: 2 MILLIGRAM
     Route: 048
  12. LEVOTHYROXINE SODIUM [Concomitant]
     Indication: PRODUCT USED FOR UNKNOWN INDICATION
     Dosage: 25 MICROGRAM
     Route: 048
  13. KLOR-CON [Concomitant]
     Indication: PRODUCT USED FOR UNKNOWN INDICATION
     Dosage: 10 MILLIEQUIVALENTS
     Route: 048
  14. LISINOPRIL [Concomitant]
     Indication: HYPERTENSION
     Dosage: 20 MILLIGRAM
     Route: 048
  15. PREDNISONE [Concomitant]
     Indication: PRODUCT USED FOR UNKNOWN INDICATION
     Dosage: 20 MILLIGRAM
     Route: 048
  16. TERAZOSIN HCL [Concomitant]
     Indication: PRODUCT USED FOR UNKNOWN INDICATION
     Dosage: 5 MILLIGRAM
     Route: 048
  17. METOPROLOL TARTRATE [Concomitant]
     Indication: HYPERTENSION
     Dosage: 100 MILLIGRAM
     Route: 048
  18. OXYCODONE-ACETAMINOPHEN [Concomitant]
     Indication: PRODUCT USED FOR UNKNOWN INDICATION
     Dosage: 10-325MG, 1 TABLET
     Route: 048
  19. COUMADIN [Concomitant]
     Indication: PRODUCT USED FOR UNKNOWN INDICATION
     Dosage: 4 MILLIGRAM
     Route: 048
  20. MS CONTIN [Concomitant]
     Indication: PRODUCT USED FOR UNKNOWN INDICATION
     Dosage: 60 MILLIGRAM
     Route: 048
  21. VICODIN [Concomitant]
     Indication: BACK PAIN
     Route: 065
     Dates: start: 201212
  22. HEPARIN [Concomitant]
     Indication: THROMBOSIS PROPHYLAXIS
     Dosage: 5000 UNITS
     Route: 065

REACTIONS (3)
  - Pneumonia [Fatal]
  - Fall [Unknown]
  - Anaemia [Unknown]
